FAERS Safety Report 5755600-3 (Version None)
Quarter: 2008Q2

REPORT INFORMATION
  Report Type: 
  Country: None (occurrence: None)
  Receive Date: 20080602
  Receipt Date: 20080523
  Transmission Date: 20081010
  Serious: Yes (Hospitalization, Other)
  Sender: FDA-Public Use
  Company Number: US-MERCK-0804USA06387

PATIENT
  Age: 63 Year
  Sex: Female
  Weight: 56 kg

DRUGS (5)
  1. FOSAMAX [Suspect]
     Indication: OSTEOPOROSIS
     Route: 048
     Dates: start: 20030101, end: 20080101
  2. FOSAMAX PLUS D [Suspect]
     Indication: OSTEOPOROSIS
     Route: 048
     Dates: start: 20030101, end: 20080101
  3. TOPROL-XL [Concomitant]
     Route: 065
  4. LASIX [Concomitant]
     Route: 065
  5. TIKOSYN [Concomitant]
     Route: 065

REACTIONS (4)
  - ATRIAL FIBRILLATION [None]
  - ATRIOVENTRICULAR BLOCK [None]
  - CARDIAC FAILURE CONGESTIVE [None]
  - PAIN IN EXTREMITY [None]
